FAERS Safety Report 15462234 (Version 1)
Quarter: 2018Q4

REPORT INFORMATION
  Report Type: Spontaneous
  Country: US (occurrence: US)
  Receive Date: 20181001
  Receipt Date: 20181001
  Transmission Date: 20190204
  Serious: No
  Sender: FDA-Public Use
  Company Number: None

PATIENT
  Age: 65 Year
  Sex: Female

DRUGS (3)
  1. OTREXUP [Suspect]
     Active Substance: METHOTREXATE
     Indication: NEUROLOGICAL SYMPTOM
     Dosage: ?          OTHER DOSE:22,5MG (0.4ML);?
     Route: 058
     Dates: start: 201808
  2. OTREXUP [Suspect]
     Active Substance: METHOTREXATE
     Indication: RHEUMATOID ARTHRITIS
     Dosage: ?          OTHER DOSE:22,5MG (0.4ML);?
     Route: 058
     Dates: start: 201808
  3. OTREXUP [Suspect]
     Active Substance: METHOTREXATE
     Indication: NEUROLOGICAL SYMPTOM

REACTIONS (3)
  - Headache [None]
  - Dysphonia [None]
  - Chest discomfort [None]
